FAERS Safety Report 18682479 (Version 1)
Quarter: 2020Q4

REPORT INFORMATION
  Report Type: Spontaneous
  Country: US (occurrence: US)
  Receive Date: 20201230
  Receipt Date: 20201230
  Transmission Date: 20210114
  Serious: Yes (Life-Threatening, Hospitalization)
  Sender: FDA-Public Use
  Company Number: US-EMCURE PHARMACEUTICALS LTD-2020-EPL-002362

PATIENT
  Age: 63 Year
  Sex: Female

DRUGS (4)
  1. FUROSEMIDE. [Suspect]
     Active Substance: FUROSEMIDE
     Indication: DIURETIC THERAPY
  2. TRIAMTERENE?HYDROCHLOROTHIAZIDE [Suspect]
     Active Substance: HYDROCHLOROTHIAZIDE\TRIAMTERENE
     Indication: DIURETIC THERAPY
  3. FLECAINIDE [Suspect]
     Active Substance: FLECAINIDE
     Indication: ATRIAL FIBRILLATION
     Dosage: 100 MILLIGRAM, BID,PER DAY
  4. METOPROLOL. [Concomitant]
     Active Substance: METOPROLOL

REACTIONS (10)
  - Electrocardiogram QT prolonged [Unknown]
  - Ventricular tachycardia [Recovering/Resolving]
  - Atrioventricular block first degree [Unknown]
  - Electrocardiogram QRS complex prolonged [Recovering/Resolving]
  - Toxicity to various agents [Unknown]
  - Bundle branch block left [Unknown]
  - Hyponatraemia [Recovering/Resolving]
  - Acute kidney injury [Unknown]
  - Hypokalaemia [Recovering/Resolving]
  - Hypovolaemia [Recovering/Resolving]
